FAERS Safety Report 17646119 (Version 2)
Quarter: 2022Q2

REPORT INFORMATION
  Report Type: Spontaneous
  Country: US (occurrence: US)
  Receive Date: 20200408
  Receipt Date: 20220616
  Transmission Date: 20220721
  Serious: No
  Sender: FDA-Public Use
  Company Number: US-SA-2020SA088884

PATIENT
  Age: 64 Year
  Sex: Male

DRUGS (1)
  1. DUPIXENT [Suspect]
     Active Substance: DUPILUMAB
     Indication: Asthma
     Dosage: 300 MG, QOW
     Route: 058
     Dates: start: 20191011

REACTIONS (5)
  - Cough [Unknown]
  - Respiratory tract congestion [Unknown]
  - Fatigue [Unknown]
  - Lethargy [Unknown]
  - Herpes zoster [Not Recovered/Not Resolved]
